FAERS Safety Report 8444946-6 (Version None)
Quarter: 2012Q2

REPORT INFORMATION
  Report Type: 
  Country: None (occurrence: None)
  Receive Date: 20120618
  Receipt Date: 20120605
  Transmission Date: 20120825
  Serious: No
  Sender: FDA-Public Use
  Company Number: US-ASTRAZENECA-2012SE14152

PATIENT
  Age: 76 Year
  Sex: Female

DRUGS (3)
  1. NEXIUM [Suspect]
     Dosage: TWO CAPSULES DAILY
     Route: 048
  2. PATADAY [Concomitant]
  3. NEXIUM [Suspect]
     Dosage: DAILY
     Route: 048

REACTIONS (2)
  - EYE INFECTION [None]
  - CIRCUMSTANCE OR INFORMATION CAPABLE OF LEADING TO MEDICATION ERROR [None]
